FAERS Safety Report 7818470-5 (Version None)
Quarter: 2011Q4

REPORT INFORMATION
  Report Type: 
  Country: None (occurrence: None)
  Receive Date: 20111017
  Receipt Date: 20101102
  Transmission Date: 20120403
  Serious: No
  Sender: FDA-Public Use
  Company Number: PR-BAYER-201040302NA

PATIENT
  Age: 11 Year
  Sex: Male

DRUGS (3)
  1. MAGNEVIST [Suspect]
     Indication: FATIGUE
     Route: 042
     Dates: start: 20101029, end: 20101029
  2. MAGNEVIST [Suspect]
     Indication: HEADACHE
  3. MAGNEVIST [Suspect]
     Indication: NUCLEAR MAGNETIC RESONANCE IMAGING BRAIN

REACTIONS (3)
  - DYSPNOEA [None]
  - URTICARIA [None]
  - VOMITING [None]
